FAERS Safety Report 16341771 (Version 5)
Quarter: 2020Q4

REPORT INFORMATION
  Report Type: Spontaneous
  Country: US (occurrence: US)
  Receive Date: 20190522
  Receipt Date: 20201204
  Transmission Date: 20210113
  Serious: No
  Sender: FDA-Public Use
  Company Number: US-BIOGEN-2019BI00739014

PATIENT
  Age: 34 Year
  Sex: Male

DRUGS (1)
  1. TYSABRI [Suspect]
     Active Substance: NATALIZUMAB
     Indication: MULTIPLE SCLEROSIS
     Route: 042
     Dates: start: 20161003

REACTIONS (4)
  - Memory impairment [Unknown]
  - Confusional state [Unknown]
  - Tremor [Unknown]
  - Aphasia [Unknown]

NARRATIVE: CASE EVENT DATE: 20190514
